FAERS Safety Report 18757654 (Version 2)
Quarter: 2021Q1

REPORT INFORMATION
  Report Type: Report from Study
  Country: CA (occurrence: CA)
  Receive Date: 20210119
  Receipt Date: 20210325
  Transmission Date: 20210419
  Serious: Yes (Other)
  Sender: FDA-Public Use
  Company Number: CA-TAKEDA-2020TUS010120

PATIENT
  Age: 62 Year
  Sex: Female

DRUGS (13)
  1. PANTOPRAZOLE [Concomitant]
     Active Substance: PANTOPRAZOLE
     Dosage: 40 MILLIGRAM, QD
  2. SYNTHROID [Concomitant]
     Active Substance: LEVOTHYROXINE SODIUM
     Dosage: UNK
  3. VIT A ACID [Concomitant]
     Dosage: UNK
  4. VEDOLIZUMAB [Suspect]
     Active Substance: VEDOLIZUMAB
     Dosage: 300 MILLIGRAM
     Route: 042
  5. VIT E                              /00110501/ [Concomitant]
     Active Substance: TOCOPHEROL
     Dosage: 400 MILLIGRAM
  6. VEDOLIZUMAB [Suspect]
     Active Substance: VEDOLIZUMAB
     Indication: COLITIS ULCERATIVE
     Dosage: 300 MILLIGRAM
     Route: 042
     Dates: start: 20190517
  7. FLUVOXAMINE [Concomitant]
     Active Substance: FLUVOXAMINE
     Dosage: 150 MILLIGRAM
  8. AMOXICILLIN. [Concomitant]
     Active Substance: AMOXICILLIN
     Dosage: 500 MILLIGRAM, QD
  9. VIT D [Concomitant]
     Active Substance: VITAMIN D NOS
     Dosage: 1000 MILLIGRAM, BID
  10. IRON [Suspect]
     Active Substance: IRON
     Indication: PRODUCT USED FOR UNKNOWN INDICATION
     Dosage: UNK
     Route: 042
  11. ASPIRIN                            /00002701/ [Concomitant]
     Active Substance: ASPIRIN
     Indication: CARDIAC DISORDER
     Dosage: UNK UNK, QD
  12. VEDOLIZUMAB [Suspect]
     Active Substance: VEDOLIZUMAB
     Dosage: 300 MILLIGRAM
     Route: 042
  13. UBIQUINOL [Concomitant]
     Active Substance: UBIQUINOL
     Dosage: UNK

REACTIONS (6)
  - Constipation [Recovered/Resolved]
  - Nausea [Unknown]
  - Frequent bowel movements [Unknown]
  - Abdominal pain [Unknown]
  - Therapeutic reaction time decreased [Unknown]
  - Haematochezia [Unknown]

NARRATIVE: CASE EVENT DATE: 20200328
